FAERS Safety Report 19837638 (Version 2)
Quarter: 2021Q3

REPORT INFORMATION
  Report Type: Spontaneous
  Country: ES (occurrence: ES)
  Receive Date: 20210914
  Receipt Date: 20210922
  Transmission Date: 20211014
  Serious: Yes (Other)
  Sender: FDA-Public Use
  Company Number: ES-INCYTE CORPORATION-2021IN008224

PATIENT

DRUGS (1)
  1. JAKAVI [Suspect]
     Active Substance: RUXOLITINIB
     Indication: ACUTE GRAFT VERSUS HOST DISEASE IN INTESTINE
     Dosage: UNK, BID
     Route: 065

REACTIONS (6)
  - Klebsiella infection [Unknown]
  - Product use in unapproved indication [Unknown]
  - Systemic candida [Unknown]
  - Product use issue [Unknown]
  - Transaminases increased [Unknown]
  - Staphylococcal infection [Unknown]
